FAERS Safety Report 23252585 (Version 1)
Quarter: 2023Q4

REPORT INFORMATION
  Report Type: Report from Study
  Country: US (occurrence: US)
  Receive Date: 20231201
  Receipt Date: 20231201
  Transmission Date: 20240110
  Serious: Yes (Other)
  Sender: FDA-Public Use
  Company Number: US-ABBVIE-5443840

PATIENT
  Age: 57 Year
  Sex: Female
  Weight: 63 kg

DRUGS (1)
  1. HUMIRA [Suspect]
     Active Substance: ADALIMUMAB
     Indication: Colitis ulcerative
     Dosage: CITRATE FREE, FORM STRENGTH 40 MILLIGRAMS, LAST ADMIN DATE 2023
     Route: 058
     Dates: start: 20230717

REACTIONS (4)
  - SARS-CoV-2 test positive [Recovered/Resolved]
  - Nasopharyngitis [Unknown]
  - Nasal congestion [Unknown]
  - Fatigue [Unknown]

NARRATIVE: CASE EVENT DATE: 20230930
